FAERS Safety Report 9383458 (Version 2)
Quarter: 2013Q3

REPORT INFORMATION
  Report Type: Spontaneous
  Country: US (occurrence: US)
  Receive Date: 20130704
  Receipt Date: 20130815
  Transmission Date: 20140515
  Serious: Yes (Death)
  Sender: FDA-Public Use
  Company Number: US-PFIZER INC-2013196739

PATIENT
  Age: 67 Year
  Sex: Female

DRUGS (1)
  1. REVATIO [Suspect]
     Indication: CHRONIC OBSTRUCTIVE PULMONARY DISEASE
     Dosage: 20 MG, 3X/DAY
     Dates: start: 20120425

REACTIONS (2)
  - Chronic obstructive pulmonary disease [Fatal]
  - Off label use [Unknown]
